FAERS Safety Report 25366667 (Version 3)
Quarter: 2025Q3

REPORT INFORMATION
  Report Type: Report from Study
  Country: US (occurrence: US)
  Receive Date: 20250528
  Receipt Date: 20250728
  Transmission Date: 20251021
  Serious: No
  Sender: SUNOVION
  Company Number: US-SUMITOMO PHARMA SWITZERLAND GMBH-2025SPA004564

PATIENT

DRUGS (15)
  1. ORGOVYX [Suspect]
     Active Substance: RELUGOLIX
     Indication: Prostate cancer
     Dosage: 360 MG, SINGLE
     Route: 048
     Dates: start: 20250429, end: 20250429
  2. ORGOVYX [Suspect]
     Active Substance: RELUGOLIX
     Dosage: 120 MG, QD
     Route: 048
     Dates: start: 20250430
  3. FLOMAX [Suspect]
     Active Substance: TAMSULOSIN HYDROCHLORIDE
     Route: 065
  4. CARBAMAZEPINE [Concomitant]
     Active Substance: CARBAMAZEPINE
     Route: 065
  5. GABAPENTIN [Concomitant]
     Active Substance: GABAPENTIN
     Route: 048
  6. VITAMINS [Concomitant]
     Active Substance: VITAMINS
     Route: 048
  7. ROSUVASTATIN [Concomitant]
     Active Substance: ROSUVASTATIN
     Route: 048
  8. VALSARTAN [Concomitant]
     Active Substance: VALSARTAN
     Route: 048
  9. VITAMIN B12 [Concomitant]
     Active Substance: CYANOCOBALAMIN
     Route: 048
  10. VITAMIN D3 [Concomitant]
     Active Substance: CHOLECALCIFEROL
     Route: 048
  11. VITAMIN E [Concomitant]
     Active Substance: .ALPHA.-TOCOPHEROL
     Route: 048
  12. IBUPROFEN [Concomitant]
     Active Substance: IBUPROFEN
     Route: 048
  13. VITAMIN D [Concomitant]
     Active Substance: VITAMIN D NOS
     Route: 048
  14. ALEVE [Concomitant]
     Active Substance: NAPROXEN SODIUM
     Route: 065
  15. PHENAZOPYRIDINE [Concomitant]
     Active Substance: PHENAZOPYRIDINE
     Route: 065

REACTIONS (5)
  - Radiation oedema [Unknown]
  - Pollakiuria [Unknown]
  - Blood pressure decreased [Unknown]
  - Dysuria [Unknown]
  - Hot flush [Unknown]

NARRATIVE: CASE EVENT DATE: 20250430
